FAERS Safety Report 13559941 (Version 10)
Quarter: 2018Q1

REPORT INFORMATION
  Report Type: Spontaneous
  Country: US (occurrence: US)
  Receive Date: 20170518
  Receipt Date: 20180113
  Transmission Date: 20180508
  Serious: No
  Sender: FDA-Public Use
  Company Number: PHEH2017US014616

PATIENT
  Sex: Male

DRUGS (4)
  1. AFINITOR [Suspect]
     Active Substance: EVEROLIMUS
     Indication: PRODUCT USED FOR UNKNOWN INDICATION
     Route: 065
  2. LISINOPRIL. [Concomitant]
     Active Substance: LISINOPRIL
     Indication: PRODUCT USED FOR UNKNOWN INDICATION
     Route: 065
  3. METOPROLOL. [Concomitant]
     Active Substance: METOPROLOL
     Indication: PRODUCT USED FOR UNKNOWN INDICATION
     Route: 065
  4. LENVATINIB [Suspect]
     Active Substance: LENVATINIB
     Indication: RENAL NEOPLASM
     Dosage: 10 MG, QD
     Route: 048
     Dates: start: 20170403

REACTIONS (10)
  - Blood sodium decreased [Unknown]
  - Proteinuria [Unknown]
  - Epistaxis [Unknown]
  - Diarrhoea [Unknown]
  - Weight decreased [Unknown]
  - Blood pressure increased [Recovered/Resolved]
  - Hypotension [Unknown]
  - Dehydration [Unknown]
  - Dizziness [Recovering/Resolving]
  - Fatigue [Unknown]
